FAERS Safety Report 17607511 (Version 1)
Quarter: 2020Q2

REPORT INFORMATION
  Report Type: Spontaneous
  Country: US (occurrence: US)
  Receive Date: 20200401
  Receipt Date: 20200401
  Transmission Date: 20200713
  Serious: Yes (Hospitalization)
  Sender: FDA-Public Use
  Company Number: US-BEH-2020115261

PATIENT
  Sex: Female

DRUGS (1)
  1. HIZENTRA [Suspect]
     Active Substance: HUMAN IMMUNOGLOBULIN G
     Indication: IMMUNODEFICIENCY COMMON VARIABLE
     Dosage: UNK UNK, QW
     Route: 065
     Dates: start: 2019

REACTIONS (3)
  - No adverse event [Unknown]
  - Influenza [Unknown]
  - Insurance issue [Unknown]

NARRATIVE: CASE EVENT DATE: 202003
